FAERS Safety Report 16122343 (Version 3)
Quarter: 2019Q3

REPORT INFORMATION
  Report Type: Report from Study
  Country: CA (occurrence: CA)
  Receive Date: 20190327
  Receipt Date: 20190906
  Transmission Date: 20191004
  Serious: No
  Sender: FDA-Public Use
  Company Number: CA-ROCHE-2190535

PATIENT
  Age: 30 Year
  Sex: Female
  Weight: 24.97 kg

DRUGS (3)
  1. OMEGA 3 [DOCOSAHEXAENOIC ACID;EICOSAPENTAENOIC ACID] [Concomitant]
     Dosage: PATIENT DOESN^T REMEMBER HOW MANY MG
     Route: 048
  2. OCREVUS [Suspect]
     Active Substance: OCRELIZUMAB
     Indication: MULTIPLE SCLEROSIS
  3. OCREVUS [Suspect]
     Active Substance: OCRELIZUMAB
     Indication: RELAPSING-REMITTING MULTIPLE SCLEROSIS
     Dosage: 300 MG AT DAY 0, 300 MG AT DAY 14 AND THEN 600 MG ;ONGOING: YES
     Route: 042
     Dates: start: 20180922

REACTIONS (15)
  - Sense of oppression [Recovered/Resolved]
  - Fatigue [Recovering/Resolving]
  - Throat irritation [Unknown]
  - Sinusitis [Recovering/Resolving]
  - Cough [Recovered/Resolved]
  - Ageusia [Recovering/Resolving]
  - Infusion related reaction [Recovered/Resolved]
  - Cough [Unknown]
  - Oropharyngeal pain [Recovered/Resolved]
  - Bronchospasm [Recovered/Resolved]
  - Muscle contractions involuntary [Recovered/Resolved]
  - Dysphonia [Unknown]
  - Sensory disturbance [Recovered/Resolved]
  - Apathy [Recovered/Resolved]
  - Panic reaction [Recovered/Resolved]

NARRATIVE: CASE EVENT DATE: 20180922
